FAERS Safety Report 7057858-X (Version None)
Quarter: 2010Q4

REPORT INFORMATION
  Report Type: 
  Country: None (occurrence: None)
  Receive Date: 20101022
  Receipt Date: 20101013
  Transmission Date: 20110411
  Serious: Yes (Other)
  Sender: FDA-Public Use
  Company Number: US-PFIZER INC-2010093512

PATIENT
  Sex: Male
  Weight: 86 kg

DRUGS (3)
  1. XALATAN [Suspect]
     Indication: INTRAOCULAR PRESSURE INCREASED
     Dosage: ONE DROP IN EACH EYE AT BEDTIME
     Route: 047
     Dates: start: 19991001
  2. XALATAN [Suspect]
     Indication: GLAUCOMA
  3. ALPHAGAN [Suspect]
     Indication: INTRAOCULAR PRESSURE INCREASED
     Dosage: UNK, 2X/DAY

REACTIONS (2)
  - DRUG ADMINISTRATION ERROR [None]
  - INTRAOCULAR PRESSURE INCREASED [None]
